FAERS Safety Report 17048046 (Version 2)
Quarter: 2020Q1

REPORT INFORMATION
  Report Type: Spontaneous
  Country: US (occurrence: US)
  Receive Date: 20191119
  Receipt Date: 20200203
  Transmission Date: 20200409
  Serious: No
  Sender: FDA-Public Use
  Company Number: US-PFIZER INC-2019491301

PATIENT
  Age: 68 Year
  Sex: Female
  Weight: 72.57 kg

DRUGS (4)
  1. ADVIL [Suspect]
     Active Substance: IBUPROFEN
     Indication: LIGAMENT SPRAIN
     Dosage: UNK UNK, AS NEEDED
  2. ADVIL [Suspect]
     Active Substance: IBUPROFEN
     Indication: SWELLING
     Dosage: 400 MG, DAILY
     Route: 048
  3. ADVIL [Suspect]
     Active Substance: IBUPROFEN
     Indication: PAIN
     Dosage: 800 MG, DAILY
     Route: 048
     Dates: start: 201911
  4. ADVIL [Suspect]
     Active Substance: IBUPROFEN
     Dosage: 2 DF, AS NEEDED
     Route: 048
     Dates: start: 201910

REACTIONS (4)
  - Product colour issue [Unknown]
  - Poor quality product administered [Unknown]
  - Dyspepsia [Unknown]
  - Product physical issue [Unknown]

NARRATIVE: CASE EVENT DATE: 201911
